FAERS Safety Report 4577116-2 (Version None)
Quarter: 2005Q1

REPORT INFORMATION
  Report Type: 
  Country: None (occurrence: None)
  Receive Date: 20050208
  Receipt Date: 20050125
  Transmission Date: 20050727
  Serious: Yes (Other)
  Sender: FDA-Public Use
  Company Number: 2004IM000772

PATIENT
  Age: 23 Year
  Sex: Male
  Weight: 78.4723 kg

DRUGS (4)
  1. INFERGEN [Suspect]
     Indication: HEPATITIS C
     Dosage: 15 UG;QD; SUBCUTANEOUS
     Route: 058
     Dates: start: 20040618, end: 20040720
  2. RIBABIRIN [Concomitant]
  3. SAQUINAVIR [Concomitant]
  4. KALETRA [Concomitant]

REACTIONS (2)
  - ALANINE AMINOTRANSFERASE INCREASED [None]
  - ASPARTATE AMINOTRANSFERASE INCREASED [None]
